FAERS Safety Report 14986735 (Version 1)
Quarter: 2018Q2

REPORT INFORMATION
  Report Type: Other
  Country: DE (occurrence: DE)
  Receive Date: 20180608
  Receipt Date: 20180608
  Transmission Date: 20180711
  Serious: Yes (Other)
  Sender: FDA-Public Use
  Company Number: DE-LUPIN PHARMACEUTICALS INC.-2018-04185

PATIENT
  Age: 1 Day
  Sex: Female
  Weight: 2.21 kg

DRUGS (8)
  1. CYTOTEC [Concomitant]
     Active Substance: MISOPROSTOL
     Indication: LABOUR INDUCTION
     Dosage: UNK
     Route: 064
     Dates: start: 20171225, end: 20171225
  2. VIGANTOLETTEN [Concomitant]
     Active Substance: CHOLECALCIFEROL
     Indication: VITAMIN D DEFICIENCY
     Dosage: 1000 (I.E./D)
     Route: 064
     Dates: start: 20170326, end: 20171225
  3. LEVETIRACETAM. [Suspect]
     Active Substance: LEVETIRACETAM
     Indication: EPILEPSY
     Dosage: 1000 MG, QD
     Route: 064
     Dates: start: 20170326, end: 20171225
  4. MISODEL [Concomitant]
     Indication: LABOUR INDUCTION
     Dosage: UNK
     Route: 064
     Dates: start: 20171225, end: 20171225
  5. L-THYROXIN [Concomitant]
     Active Substance: LEVOTHYROXINE SODIUM
     Indication: HYPOTHYROIDISM
     Dosage: 25 (U/D)/ALTERNATING 12.5 AND 25 UG/D
     Route: 064
     Dates: start: 20170326, end: 20171225
  6. PROTHYRID [Concomitant]
     Active Substance: LEVOTHYROXINE SODIUM
     Indication: HYPOTHYROIDISM
     Dosage: 5 MCG, QD
     Route: 064
     Dates: start: 20170326, end: 20171225
  7. FOLSAN [Concomitant]
     Active Substance: FOLIC ACID
     Indication: PROPHYLAXIS OF NEURAL TUBE DEFECT
     Dosage: 5 MG/D
     Route: 064
     Dates: start: 20170326, end: 20171225
  8. INFLUVAC [Concomitant]
     Active Substance: INFLUENZA VIRUS VACCINE TRIVALENT TYPE A+B
     Indication: IMMUNISATION
     Dosage: UNK
     Route: 064
     Dates: start: 20171019, end: 20171019

REACTIONS (4)
  - Respiratory disorder neonatal [Recovered/Resolved]
  - Temperature regulation disorder [Recovered/Resolved]
  - Foetal exposure during pregnancy [Unknown]
  - Small for dates baby [Recovering/Resolving]

NARRATIVE: CASE EVENT DATE: 20171225
